FAERS Safety Report 6986310-2 (Version None)
Quarter: 2010Q3

REPORT INFORMATION
  Report Type: 
  Country: None (occurrence: None)
  Receive Date: 20100915
  Receipt Date: 20090623
  Transmission Date: 20110219
  Serious: No
  Sender: FDA-Public Use
  Company Number: US-WYE-H09866209

PATIENT
  Sex: Male
  Weight: 74.91 kg

DRUGS (8)
  1. PRISTIQ [Suspect]
     Indication: DEPRESSION
     Route: 048
     Dates: start: 20090501, end: 20090614
  2. PRISTIQ [Suspect]
     Dates: start: 20090615, end: 20090621
  3. PRISTIQ [Suspect]
     Route: 048
     Dates: start: 20090615, end: 20090621
  4. ALFUZOSIN HYDROCHLORIDE [Concomitant]
  5. METFORMIN [Concomitant]
  6. EUTHROID [Concomitant]
  7. ALTACE [Concomitant]
  8. VYTORIN [Concomitant]

REACTIONS (2)
  - EXTRASYSTOLES [None]
  - PALPITATIONS [None]
